FAERS Safety Report 24558008 (Version 1)
Quarter: 2024Q4

REPORT INFORMATION
  Report Type: Spontaneous
  Country: CN (occurrence: CN)
  Receive Date: 20241028
  Receipt Date: 20241028
  Transmission Date: 20250115
  Serious: Yes (Other)
  Sender: ABBVIE
  Company Number: CN-ABBVIE-5976930

PATIENT
  Age: 70 Year
  Sex: Male
  Weight: 67 kg

DRUGS (3)
  1. VENETOCLAX [Suspect]
     Active Substance: VENETOCLAX
     Indication: Myeloid leukaemia
     Dosage: 100 MILLIGRAM
     Route: 048
     Dates: start: 20241013, end: 20241013
  2. AZACITIDINE [Suspect]
     Active Substance: AZACITIDINE
     Indication: Myeloid leukaemia
     Dosage: 100 MILLIGRAM?AZACITIDINE FOR INJECTION
     Route: 058
     Dates: start: 20241013, end: 20241019
  3. STERILE WATER [Concomitant]
     Active Substance: WATER
     Indication: Product used for unknown indication
     Dosage: 4 MILLILITER?STERILE WATER FOR INJECTION
     Route: 058
     Dates: start: 20241013, end: 20241019

REACTIONS (1)
  - Myelosuppression [Recovering/Resolving]

NARRATIVE: CASE EVENT DATE: 20241017
